FAERS Safety Report 7588135-6 (Version None)
Quarter: 2011Q2

REPORT INFORMATION
  Report Type: 
  Country: None (occurrence: None)
  Receive Date: 20110627
  Receipt Date: 20110621
  Transmission Date: 20111010
  Serious: Yes (Death, Life-Threatening, Hospitalization, Other)
  Sender: FDA-Public Use
  Company Number: 2010AC000335

PATIENT
  Age: 77 Year
  Sex: Female

DRUGS (6)
  1. DIGOXIN [Suspect]
     Dosage: IV
     Route: 042
     Dates: start: 20080429, end: 20080429
  2. ROCEPHIN [Concomitant]
  3. LOPRESSOR [Concomitant]
  4. MORPHINE [Concomitant]
  5. DIGOXIN [Suspect]
     Dosage: 0.25 MG; QD; PO
     Route: 048
     Dates: start: 20060104, end: 20080430
  6. LEVOTHYROXINE SODIUM [Concomitant]

REACTIONS (12)
  - PAIN [None]
  - UNEVALUABLE EVENT [None]
  - ECONOMIC PROBLEM [None]
  - METABOLIC ACIDOSIS [None]
  - CARDIAC DISORDER [None]
  - DEHYDRATION [None]
  - MULTIPLE INJURIES [None]
  - ANXIETY [None]
  - HYPOTENSION [None]
  - RENAL FAILURE ACUTE [None]
  - HEPATIC FUNCTION ABNORMAL [None]
  - CARDIAC ARREST [None]
